FAERS Safety Report 23867233 (Version 2)
Quarter: 2024Q3

REPORT INFORMATION
  Report Type: Spontaneous
  Country: US (occurrence: US)
  Receive Date: 20240517
  Receipt Date: 20240920
  Transmission Date: 20241017
  Serious: Yes (Hospitalization, Other)
  Sender: SANOFI AVENTIS
  Company Number: US-SANOFI-02045634

PATIENT
  Age: 80 Year
  Sex: Female
  Weight: 56.69 kg

DRUGS (2)
  1. LANTUS SOLOSTAR [Suspect]
     Active Substance: INSULIN GLARGINE
     Indication: Diabetes mellitus
     Dosage: 2 IU, QD
     Route: 058
  2. LANTUS SOLOSTAR [Suspect]
     Active Substance: INSULIN GLARGINE
     Dosage: MORE THAN 20 U
     Route: 058

REACTIONS (10)
  - Blood glucose fluctuation [Unknown]
  - Scleroderma [Unknown]
  - Cerebrovascular accident [Unknown]
  - Aortic aneurysm [Unknown]
  - Hypertension [Unknown]
  - Illness [Unknown]
  - Lower limb fracture [Unknown]
  - Fracture pain [Not Recovered/Not Resolved]
  - Visual impairment [Unknown]
  - Blood glucose increased [Unknown]

NARRATIVE: CASE EVENT DATE: 20200101
